FAERS Safety Report 6977983-9 (Version None)
Quarter: 2010Q3

REPORT INFORMATION
  Report Type: 
  Country: None (occurrence: None)
  Receive Date: 20100913
  Receipt Date: 20100830
  Transmission Date: 20110219
  Serious: Yes (Death)
  Sender: FDA-Public Use
  Company Number: SE-RANBAXY-2010RR-38019

PATIENT
  Age: 19 Year
  Sex: Male

DRUGS (4)
  1. CODEINE SUL TAB [Suspect]
  2. MORPHINE [Suspect]
  3. SODIUM OXYBATE [Suspect]
  4. HEROIN [Suspect]

REACTIONS (3)
  - DEATH [None]
  - DRUG ABUSE [None]
  - OVERDOSE [None]
